FAERS Safety Report 10008587 (Version 2)
Quarter: 2014Q1

REPORT INFORMATION
  Report Type: Spontaneous
  Country: US (occurrence: US)
  Receive Date: 20140312
  Receipt Date: 20140312
  Transmission Date: 20141002
  Serious: Yes (Hospitalization)
  Sender: FDA-Public Use
  Company Number: US-INCYTE CORPORATION-2012IN000153

PATIENT
  Age: 50 Year
  Sex: 0

DRUGS (3)
  1. JAKAFI [Suspect]
     Indication: MYELOFIBROSIS
     Dosage: 20 MG, BID
     Route: 048
     Dates: start: 20111202
  2. JAKAFI [Suspect]
     Dosage: 10 MG, BID
     Route: 048
  3. DIFLUCAN [Suspect]
     Indication: LOWER RESPIRATORY TRACT INFECTION FUNGAL

REACTIONS (3)
  - Platelet count decreased [Unknown]
  - Drug interaction [Unknown]
  - Lower respiratory tract infection fungal [Unknown]
